FAERS Safety Report 20308954 (Version 5)
Quarter: 2022Q2

REPORT INFORMATION
  Report Type: Report from Study
  Country: US (occurrence: US)
  Receive Date: 20220107
  Receipt Date: 20220411
  Transmission Date: 20220721
  Serious: Yes (Hospitalization, Other)
  Sender: FDA-Public Use
  Company Number: US-ABBVIE-22K-163-4224325-00

PATIENT
  Sex: Female
  Weight: 122.58 kg

DRUGS (16)
  1. RINVOQ [Suspect]
     Active Substance: UPADACITINIB
     Indication: Rheumatoid arthritis
     Dosage: TAKE ONE TABLET BY MOUTH ONCE DAILY
     Route: 048
     Dates: start: 2021, end: 202109
  2. RINVOQ [Suspect]
     Active Substance: UPADACITINIB
     Route: 048
     Dates: start: 2021
  3. MODERNA COVID-19 VACCINE [Concomitant]
     Active Substance: ELASOMERAN
     Indication: COVID-19 immunisation
     Route: 030
  4. FLEXERIL [Concomitant]
     Active Substance: CYCLOBENZAPRINE HYDROCHLORIDE
     Indication: Muscle spasms
  5. XANAX [Concomitant]
     Active Substance: ALPRAZOLAM
     Indication: Nervous system disorder
  6. POTASSIUM CHLORIDE [Concomitant]
     Active Substance: POTASSIUM CHLORIDE
     Indication: Blood potassium decreased
  7. SYNTHROID [Concomitant]
     Active Substance: LEVOTHYROXINE SODIUM
     Indication: Thyroid disorder
  8. HYDROCODONE [Concomitant]
     Active Substance: HYDROCODONE
     Indication: Pain
  9. CARVEDILOL [Concomitant]
     Active Substance: CARVEDILOL
     Indication: Cardiac disorder
  10. ROSUVASTATIN [Concomitant]
     Active Substance: ROSUVASTATIN
     Indication: Blood cholesterol increased
  11. ZOLOFT [Concomitant]
     Active Substance: SERTRALINE HYDROCHLORIDE
     Indication: Depression
  12. TYLENOL [Concomitant]
     Active Substance: ACETAMINOPHEN
     Indication: Pain
  13. PFIZER-BIONTECH COVID-19 VACCINE [Concomitant]
     Active Substance: TOZINAMERAN
     Indication: COVID-19 immunisation
     Route: 030
     Dates: start: 20210520, end: 20210520
  14. PFIZER-BIONTECH COVID-19 VACCINE [Concomitant]
     Active Substance: TOZINAMERAN
     Route: 030
     Dates: start: 20210606, end: 20210606
  15. PFIZER-BIONTECH COVID-19 VACCINE [Concomitant]
     Active Substance: TOZINAMERAN
     Route: 030
     Dates: start: 20220224, end: 20220224
  16. PFIZER-BIONTECH COVID-19 VACCINE [Concomitant]
     Active Substance: TOZINAMERAN
     Indication: COVID-19 immunisation
     Route: 030

REACTIONS (39)
  - Illness [Recovering/Resolving]
  - Spinal osteoarthritis [Recovering/Resolving]
  - Post procedural infection [Recovered/Resolved]
  - Dyspnoea [Recovered/Resolved]
  - Venous occlusion [Unknown]
  - COVID-19 [Recovered/Resolved]
  - Bronchitis [Recovered/Resolved]
  - Spinal operation [Unknown]
  - Dizziness [Unknown]
  - Pneumonia [Recovered/Resolved]
  - Dry mouth [Recovering/Resolving]
  - Fatigue [Recovered/Resolved with Sequelae]
  - Back pain [Recovering/Resolving]
  - Hypoaesthesia [Recovering/Resolving]
  - Diarrhoea [Recovered/Resolved]
  - Blood pressure increased [Recovered/Resolved]
  - Dysphonia [Recovering/Resolving]
  - Hypophagia [Recovering/Resolving]
  - Laboratory test abnormal [Unknown]
  - Peripheral swelling [Unknown]
  - Erythema [Unknown]
  - Fungal skin infection [Recovered/Resolved]
  - Vasodilatation [Unknown]
  - Laboratory test abnormal [Unknown]
  - Scratch [Recovered/Resolved]
  - Wound haemorrhage [Recovered/Resolved]
  - Skin abrasion [Recovered/Resolved]
  - Cardiac stress test [Unknown]
  - Aptyalism [Unknown]
  - Rash [Unknown]
  - Rheumatoid arthritis [Unknown]
  - Skin oedema [Unknown]
  - Blood test abnormal [Unknown]
  - Burning sensation [Unknown]
  - Balance disorder [Unknown]
  - Fall [Unknown]
  - Amnesia [Unknown]
  - Alopecia [Unknown]
  - Influenza [Unknown]

NARRATIVE: CASE EVENT DATE: 20210101
